FAERS Safety Report 17793286 (Version 2)
Quarter: 2020Q2

REPORT INFORMATION
  Report Type: Spontaneous
  Country: US (occurrence: US)
  Receive Date: 20200515
  Receipt Date: 20200515
  Transmission Date: 20200714
  Serious: Yes (Other)
  Sender: FDA-Public Use
  Company Number: US-PFIZER INC-2020193771

PATIENT
  Sex: Female

DRUGS (1)
  1. ADVIL PM [Suspect]
     Active Substance: DIPHENHYDRAMINE CITRATE\IBUPROFEN
     Dosage: 2 DF, AS NEEDED
     Route: 048

REACTIONS (5)
  - Foreign body in throat [Unknown]
  - Throat irritation [Unknown]
  - Intentional product misuse [Unknown]
  - Product use complaint [Unknown]
  - Pollakiuria [Unknown]
